FAERS Safety Report 15272362 (Version 1)
Quarter: 2018Q3

REPORT INFORMATION
  Report Type: Spontaneous
  Country: US (occurrence: US)
  Receive Date: 20180813
  Receipt Date: 20180813
  Transmission Date: 20181010
  Serious: No
  Sender: FDA-Public Use
  Company Number: US-DEPOMED, INC.-US-2018DEP001092

PATIENT

DRUGS (1)
  1. CAMBIA [Suspect]
     Active Substance: DICLOFENAC POTASSIUM
     Indication: PRODUCT USE IN UNAPPROVED INDICATION
     Dosage: 50 MG, PRN
     Route: 048

REACTIONS (1)
  - Drug administered to patient of inappropriate age [Unknown]
